FAERS Safety Report 18794794 (Version 1)
Quarter: 2021Q1

REPORT INFORMATION
  Report Type: Spontaneous
  Country: NL (occurrence: NL)
  Receive Date: 20210127
  Receipt Date: 20210127
  Transmission Date: 20210419
  Serious: Yes (Hospitalization, Disabling)
  Sender: FDA-Public Use
  Company Number: NL-TEVA-2021-NL-1872520

PATIENT
  Age: 74 Year
  Sex: Female
  Weight: 62 kg

DRUGS (5)
  1. CARBASALAATCALCIUM POEDER 100MG / BRAND NAME NOT SPECIFIED [Concomitant]
     Dosage: 100 MILLIGRAM, THERAPY START DATE AND END DATE: ASKU
  2. VALACYCLOVIR [Suspect]
     Active Substance: VALACYCLOVIR HYDROCHLORIDE
     Indication: HERPES ZOSTER
     Dosage: 3000 MILLIGRAM DAILY;  THERAPY END DATE: ASKU
     Dates: start: 202012
  3. ATENOLOL TABLET  25MG / BRAND NAME NOT SPECIFIED [Concomitant]
     Dosage: 25 MILLIGRAM DAILY; THERAPY START DATE AND END DATE: ASKU
  4. LORAZEPAM TABLET 1MG / BRAND NAME NOT SPECIFIED [Concomitant]
     Dosage: 3 MILLIGRAM DAILY; THERAPY START DATE AND END DATE: ASKU
  5. TRAMADOL CAPSULE MGA  50MG / BRAND NAME NOT SPECIFIED [Concomitant]
     Active Substance: TRAMADOL
     Dosage: 100 MILLIGRAM DAILY; 50MG. NOW TWICE A DAY, THERAPY START DATE AND END DATE: ASKU

REACTIONS (4)
  - Pelvic pain [Recovering/Resolving]
  - Back pain [Recovering/Resolving]
  - Walking disability [Recovering/Resolving]
  - Abdominal pain lower [Recovering/Resolving]

NARRATIVE: CASE EVENT DATE: 20201108
